FAERS Safety Report 17087362 (Version 1)
Quarter: 2019Q4

REPORT INFORMATION
  Report Type: Spontaneous
  Country: CN (occurrence: CN)
  Receive Date: 20191128
  Receipt Date: 20191128
  Transmission Date: 20200122
  Serious: Yes (Hospitalization)
  Sender: FDA-Public Use
  Company Number: CN-PFIZER INC-2019509814

PATIENT
  Age: 67 Year
  Sex: Male

DRUGS (1)
  1. AMLODIPINE BESILATE [Suspect]
     Active Substance: AMLODIPINE BESYLATE
     Indication: BLOOD PRESSURE ABNORMAL
     Dosage: 5 MG, 1X/DAY
     Route: 048
     Dates: start: 20190624, end: 20191017

REACTIONS (3)
  - Pain in extremity [Recovered/Resolved]
  - Gait disturbance [Unknown]
  - Oedema peripheral [Recovering/Resolving]

NARRATIVE: CASE EVENT DATE: 2019
